FAERS Safety Report 9887391 (Version 2)
Quarter: 2014Q1

REPORT INFORMATION
  Report Type: Spontaneous
  Country: JP (occurrence: JP)
  Receive Date: 20140211
  Receipt Date: 20140223
  Transmission Date: 20141002
  Serious: Yes (Other)
  Sender: FDA-Public Use
  Company Number: JP-AMGEN-JPNSP2014007383

PATIENT
  Sex: Female

DRUGS (3)
  1. ENBREL [Suspect]
     Indication: RHEUMATOID ARTHRITIS
     Dosage: 50 MG WEEKLY
     Route: 058
     Dates: start: 20100416
  2. EDIROL [Suspect]
     Indication: OSTEOPOROSIS
     Dosage: UNK
     Route: 065
  3. ADALAT [Suspect]
     Indication: BLOOD PRESSURE
     Dosage: UNK
     Route: 065

REACTIONS (9)
  - Tubulointerstitial nephritis [Unknown]
  - Subarachnoid haemorrhage [Unknown]
  - Blood urea increased [Recovered/Resolved]
  - Blood creatinine increased [Recovered/Resolved]
  - Abdominal lymphadenopathy [Not Recovered/Not Resolved]
  - Flatulence [Unknown]
  - Local swelling [Unknown]
  - Blood calcium increased [Recovered/Resolved]
  - Abdominal distension [Unknown]
